FAERS Safety Report 9506235 (Version 1)
Quarter: 2013Q1

REPORT INFORMATION
  Report Type: Spontaneous
  Country: US (occurrence: None)
  Receive Date: 20130301
  Receipt Date: 20130301
  Transmission Date: 20140127
  Serious: Yes (Other)
  Sender: FDA-Public Use
  Company Number: RB-41284-2012

PATIENT
  Sex: Female

DRUGS (2)
  1. SUBOXONE [Suspect]
     Indication: DRUG DEPENDENCE
     Route: 060
     Dates: start: 2012, end: 2012
  2. SUBUTEX [Suspect]
     Indication: PAIN MANAGEMENT
     Dosage: DOSING DETAILS UNKNOWN UNKNOWN

REACTIONS (6)
  - Hallucination [None]
  - Off label use [None]
  - Therapeutic response unexpected [None]
  - Feeling abnormal [None]
  - Underdose [None]
  - Drug dependence [None]
